FAERS Safety Report 17584570 (Version 1)
Quarter: 2020Q1

REPORT INFORMATION
  Report Type: Spontaneous
  Country: JP (occurrence: JP)
  Receive Date: 20200326
  Receipt Date: 20200326
  Transmission Date: 20200409
  Serious: Yes (Life-Threatening, Hospitalization)
  Sender: FDA-Public Use
  Company Number: JP-009507513-2003JPN002089J

PATIENT
  Age: 72 Year
  Sex: Male
  Weight: 55 kg

DRUGS (4)
  1. CLOPIDOGREL [Concomitant]
     Active Substance: CLOPIDOGREL BISULFATE
     Dosage: 75 MILLIGRAM
     Route: 048
  2. ROSUVASTATIN. [Concomitant]
     Active Substance: ROSUVASTATIN
     Dosage: 5 MILLIGRAM
     Route: 048
  3. BROTIZOLAM OD [Concomitant]
     Dosage: 0.25 MILLIGRAM
     Route: 048
  4. KEYTRUDA [Suspect]
     Active Substance: PEMBROLIZUMAB
     Indication: NON-SMALL CELL LUNG CANCER
     Dosage: 200 MILLIGRAM,ONCE
     Route: 041
     Dates: start: 20191217, end: 20191217

REACTIONS (1)
  - Lung disorder [Recovering/Resolving]

NARRATIVE: CASE EVENT DATE: 20200107
